FAERS Safety Report 7606034-8 (Version None)
Quarter: 2011Q3

REPORT INFORMATION
  Report Type: 
  Country: None (occurrence: None)
  Receive Date: 20110713
  Receipt Date: 20110708
  Transmission Date: 20111222
  Serious: Yes (Death)
  Sender: FDA-Public Use
  Company Number: PHHY2011US59909

PATIENT
  Sex: Female

DRUGS (19)
  1. NOVOLOG [Concomitant]
     Dosage: 20 IU, TID
     Route: 058
  2. KLONOPIN [Concomitant]
     Dosage: 1 DF, QHS
     Route: 048
  3. PREDNISONE [Concomitant]
     Dosage: 4 MG DAILY
  4. LANTUS [Concomitant]
     Dosage: 70 IU EVERY MORNING
     Route: 058
  5. OMEPRAZOLE [Concomitant]
     Dosage: 20 MG, BID
  6. NITROGLYCERIN [Concomitant]
     Indication: CHEST PAIN
     Dosage: 1 DF, PRN
  7. FLEXERIL [Concomitant]
     Indication: NECK PAIN
     Dosage: 0.5 DF, TID
     Route: 048
  8. ALDACTONE [Concomitant]
     Dosage: 1 DF, QD
     Route: 048
  9. LISINOPRIL [Concomitant]
     Dosage: 20 MG, BID
     Route: 048
  10. PULMICORT [Concomitant]
     Dosage: UNK UKN, UNK
  11. FLEXERIL [Concomitant]
     Dosage: UNK
  12. LASIX [Concomitant]
     Dosage: 1 DF, BID
     Route: 048
  13. CYMBALTA [Concomitant]
     Dosage: 30 MG, QD
     Route: 048
  14. CALCIUM CARBONATE [Concomitant]
     Dosage: 1 DF, BID
     Route: 048
  15. RECLAST [Suspect]
     Dosage: 5 MG, UNK
     Route: 042
  16. THEO-24 [Concomitant]
     Dosage: 1 DF EVERY DAY
     Route: 048
  17. ZOFRAN [Concomitant]
     Dosage: 1 DF, Q8H
     Route: 048
  18. LIDODERM [Concomitant]
     Dosage: 1 DF, QD
     Route: 062
  19. ALPRAZOLAM [Concomitant]
     Dosage: 0.5 DF TO ONE TABLET Q4 TO 6 HOURS AS NEEDED
     Route: 048

REACTIONS (3)
  - SUDDEN CARDIAC DEATH [None]
  - CORONARY ARTERY DISEASE [None]
  - DYSPNOEA [None]
